FAERS Safety Report 5344054-7 (Version None)
Quarter: 2007Q2

REPORT INFORMATION
  Report Type: 
  Country: None (occurrence: None)
  Receive Date: 20070604
  Receipt Date: 20070530
  Transmission Date: 20071010
  Serious: Yes (Other)
  Sender: FDA-Public Use
  Company Number: A0653745A

PATIENT
  Age: 43 Year
  Sex: Female

DRUGS (8)
  1. ADVAIR DISKUS 100/50 [Suspect]
     Indication: DRUG USE FOR UNKNOWN INDICATION
     Dosage: 1U TWICE PER DAY
     Route: 055
  2. KALETRA [Suspect]
     Dosage: 1U THREE TIMES PER DAY
     Route: 048
  3. ABACAVIR [Concomitant]
     Route: 065
  4. CITALOPRAM HYDROBROMIDE [Concomitant]
     Route: 065
  5. DIDANOSINE [Concomitant]
     Route: 065
  6. METOCLOPRAMIDE [Concomitant]
     Route: 065
  7. PANTOPRAZOLE SODIUM [Concomitant]
     Route: 065
  8. SPIRONOLACTONE [Concomitant]
     Route: 065

REACTIONS (5)
  - ABDOMINAL PAIN [None]
  - CUSHING'S SYNDROME [None]
  - DRUG INTERACTION [None]
  - DYSPEPSIA [None]
  - MUSCLE SPASMS [None]
